FAERS Safety Report 5258384-0 (Version None)
Quarter: 2007Q1

REPORT INFORMATION
  Report Type: 
  Country: None (occurrence: None)
  Receive Date: 20070306
  Receipt Date: 20070306
  Transmission Date: 20070707
  Serious: Yes (Hospitalization)
  Sender: FDA-Public Use
  Company Number: None

PATIENT
  Age: 79 Year
  Sex: Female
  Weight: 64 kg

DRUGS (17)
  1. PIROXICAM [Suspect]
     Dosage: 10MG QD
  2. PLAVIX [Suspect]
     Indication: COMPUTERISED TOMOGRAM ABNORMAL
     Dosage: 75 QD
  3. MINITRAN [Concomitant]
  4. NATRUM [Concomitant]
  5. PRAZOSIN HCL [Concomitant]
  6. OXYBUTYNIN CHLORIDE [Concomitant]
  7. DILTIAZEM [Concomitant]
  8. FUROSEMIDE [Concomitant]
  9. LORAZEPAM [Concomitant]
  10. ZAROXOLYN [Concomitant]
  11. FERROUS SULFATE [Concomitant]
  12. MULTI-VITAMIN [Concomitant]
  13. CALCIUM [Concomitant]
  14. LIPITOR [Concomitant]
  15. POTASSIUM ACETATE [Concomitant]
  16. LISINOPRIL [Concomitant]
  17. ALLOPURINOL [Concomitant]

REACTIONS (6)
  - ASTHENIA [None]
  - BLOOD PRESSURE DIASTOLIC DECREASED [None]
  - EROSIVE OESOPHAGITIS [None]
  - GASTRITIS EROSIVE [None]
  - HEART RATE DECREASED [None]
  - ULCER [None]
